FAERS Safety Report 6877048-0 (Version None)
Quarter: 2010Q3

REPORT INFORMATION
  Report Type: 
  Country: None (occurrence: None)
  Receive Date: 20100727
  Receipt Date: 20100713
  Transmission Date: 20110219
  Serious: Yes (Death)
  Sender: FDA-Public Use
  Company Number: JP-ROCHE-708010

PATIENT
  Sex: Female
  Weight: 50 kg

DRUGS (16)
  1. ACTEMRA [Suspect]
     Indication: RHEUMATOID ARTHRITIS
     Dosage: DOSE FORM: INJECTION.
     Route: 041
     Dates: start: 20091210, end: 20091210
  2. ACTEMRA [Suspect]
     Route: 041
     Dates: start: 20100108, end: 20100108
  3. ACTEMRA [Suspect]
     Route: 041
     Dates: start: 20100212, end: 20100212
  4. ACTEMRA [Suspect]
     Route: 041
     Dates: start: 20100409, end: 20100409
  5. ACTEMRA [Suspect]
     Route: 041
     Dates: start: 20100511, end: 20100511
  6. AMOBAN [Suspect]
     Indication: PRODUCT USED FOR UNKNOWN INDICATION
     Dosage: NOTE: DOSAGE IS UNCERTAIN, DISCONTINUED.
     Route: 048
     Dates: end: 20091001
  7. RHYTHMY [Suspect]
     Indication: PRODUCT USED FOR UNKNOWN INDICATION
     Dosage: NOTE: DOSAGE IS UNCERTAIN, DISCONTINUED.
     Route: 048
     Dates: end: 20091001
  8. HALCION [Suspect]
     Indication: PRODUCT USED FOR UNKNOWN INDICATION
     Dosage: NOTE: DOSAGE IS UNCERTAIN, DISCONTINUED.
     Route: 048
     Dates: end: 20091001
  9. GOODMIN [Suspect]
     Indication: PRODUCT USED FOR UNKNOWN INDICATION
     Dosage: NOTE: DOSAGE IS UNCERTAIN, DISCONTINUED.
     Route: 048
     Dates: end: 20091001
  10. LEVOTOMIN [Suspect]
     Indication: PRODUCT USED FOR UNKNOWN INDICATION
     Dosage: DOSE FORM: PERORAL AGENT, NOTE: DOSAGE IS UNCERTAIN, DISCONTINUED.
     Route: 048
     Dates: end: 20091001
  11. DEPAS [Suspect]
     Indication: PRODUCT USED FOR UNKNOWN INDICATION
     Dosage: NOTE: DOSAGE IS UNCERTAIN, DISCONTINUED, FORM: PERORAL AGENT.
     Route: 048
     Dates: end: 20091001
  12. PREDONINE [Concomitant]
     Route: 048
     Dates: start: 20100108, end: 20100514
  13. PREDNISOLONE [Concomitant]
     Dosage: DOSE FORM: PERORAL AGENT.
     Route: 048
     Dates: start: 20100108, end: 20100514
  14. GASTER [Concomitant]
     Dosage: DRUG NAME: GASTER (FAMOTIDINE).
     Route: 048
     Dates: start: 20100108, end: 20100514
  15. LOXONIN [Concomitant]
     Dosage: DOSE FORM: TAPE, DRUG NAME: LOXONIN (LOXOPROFEN SODIUM).
     Route: 061
     Dates: start: 20100108, end: 20100514
  16. SALICYLIC ACID [Concomitant]
     Dosage: FORM: OINTMENT AND CREAM, PROPER QUANTITY, ZESTAK (ADRENAL EXTRACT SALICYLIC ACID COMBINED DRUG).
     Route: 061
     Dates: start: 20100108, end: 20100514

REACTIONS (1)
  - COMPLETED SUICIDE [None]
